FAERS Safety Report 11800214 (Version 1)
Quarter: 2015Q4

REPORT INFORMATION
  Report Type: Spontaneous
  Country: KR (occurrence: KR)
  Receive Date: 20151203
  Receipt Date: 20151203
  Transmission Date: 20160305
  Serious: Yes (Hospitalization)
  Sender: FDA-Public Use
  Company Number: KR-AMGEN-KORCT2015128016

PATIENT
  Age: 59 Year
  Sex: Female
  Weight: 63.5 kg

DRUGS (24)
  1. RITUXIMAB [Concomitant]
     Active Substance: RITUXIMAB
     Dosage: 663.75 MG, UNK
     Route: 042
     Dates: start: 20150324, end: 20150324
  2. DOXORUBICIN [Concomitant]
     Active Substance: DOXORUBICIN
     Dosage: 88.5 MG, UNK
     Route: 042
     Dates: start: 20150324, end: 20150324
  3. CYCLOPHOSPHAMIDE. [Concomitant]
     Active Substance: CYCLOPHOSPHAMIDE
     Dosage: 1327.5 MG, UNK
     Route: 042
     Dates: start: 20150324, end: 20150324
  4. CYCLOPHOSPHAMIDE. [Concomitant]
     Active Substance: CYCLOPHOSPHAMIDE
     Dosage: 1335 MG, UNK
     Route: 042
     Dates: start: 20150512, end: 20150512
  5. DOXORUBICIN [Concomitant]
     Active Substance: DOXORUBICIN
     Dosage: 89 MG, UNK
     Route: 042
     Dates: start: 20150512, end: 20150512
  6. VINCRISTINE [Concomitant]
     Active Substance: VINCRISTINE
     Dosage: 2 MG, UNK
     Route: 042
     Dates: start: 20150512, end: 20150512
  7. PREDNISOLONE. [Concomitant]
     Active Substance: PREDNISOLONE
     Dosage: 60 MG, UNK
     Route: 048
     Dates: start: 20150227, end: 20150227
  8. G-LASTA [Suspect]
     Active Substance: PEGFILGRASTIM
     Dosage: 6 MG, 1X/3WEEKS
     Route: 058
     Dates: start: 20150325
  9. G-LASTA [Suspect]
     Active Substance: PEGFILGRASTIM
     Dosage: 6 MG, 1X/3WEEKS
     Route: 058
     Dates: start: 20150417
  10. RITUXIMAB [Concomitant]
     Active Substance: RITUXIMAB
     Dosage: 671.25 MG, UNK
     Route: 042
     Dates: start: 20150227, end: 20150227
  11. DOXORUBICIN [Concomitant]
     Active Substance: DOXORUBICIN
     Dosage: 89.5 MG, UNK
     Route: 042
     Dates: start: 20150227, end: 20150227
  12. VINCRISTINE [Concomitant]
     Active Substance: VINCRISTINE
     Dosage: 1.98 MG, UNK
     Route: 042
     Dates: start: 20150324, end: 20150324
  13. PREDNISOLONE. [Concomitant]
     Active Substance: PREDNISOLONE
     Dosage: 60 MG, UNK
     Route: 048
     Dates: start: 20150324, end: 20150324
  14. RITUXIMAB [Concomitant]
     Active Substance: RITUXIMAB
     Dosage: 663.75 MG, UNK
     Route: 042
     Dates: start: 20150416, end: 20150416
  15. DOXORUBICIN [Concomitant]
     Active Substance: DOXORUBICIN
     Dosage: 88.5 MG, UNK
     Route: 042
     Dates: start: 20150416, end: 20150416
  16. VINCRISTINE [Concomitant]
     Active Substance: VINCRISTINE
     Dosage: 2 MG, UNK
     Route: 042
     Dates: start: 20150416, end: 20150416
  17. G-LASTA [Suspect]
     Active Substance: PEGFILGRASTIM
     Indication: FEBRILE NEUTROPENIA
     Dosage: 6 MG, 1X/3WEEKS
     Route: 058
     Dates: start: 20150228
  18. VINCRISTINE [Concomitant]
     Active Substance: VINCRISTINE
     Dosage: 2 MG, UNK
     Route: 042
     Dates: start: 20150227, end: 20150227
  19. G-LASTA [Suspect]
     Active Substance: PEGFILGRASTIM
     Dosage: 6 MG, 1X/3WEEKS
     Route: 058
     Dates: start: 20150513
  20. RITUXIMAB [Concomitant]
     Active Substance: RITUXIMAB
     Dosage: 667.5 MG, UNK
     Route: 042
     Dates: start: 20150512, end: 20150512
  21. CYCLOPHOSPHAMIDE. [Concomitant]
     Active Substance: CYCLOPHOSPHAMIDE
     Dosage: 1327.5 MG, UNK
     Route: 042
     Dates: start: 20150416, end: 20150416
  22. PREDNISOLONE. [Concomitant]
     Active Substance: PREDNISOLONE
     Dosage: 60 MG, UNK
     Route: 048
     Dates: start: 20150416, end: 20150416
  23. PREDNISOLONE. [Concomitant]
     Active Substance: PREDNISOLONE
     Dosage: 60 MG, UNK
     Route: 048
     Dates: start: 20150512, end: 20150512
  24. CYCLOPHOSPHAMIDE. [Concomitant]
     Active Substance: CYCLOPHOSPHAMIDE
     Dosage: 1342.5 MG, UNK
     Route: 042
     Dates: start: 20150227, end: 20150227

REACTIONS (1)
  - Neutropenia [Recovered/Resolved]

NARRATIVE: CASE EVENT DATE: 20150519
